FAERS Safety Report 20620646 (Version 2)
Quarter: 2022Q1

REPORT INFORMATION
  Report Type: Spontaneous
  Country: US (occurrence: US)
  Receive Date: 20220322
  Receipt Date: 20220329
  Transmission Date: 20220423
  Serious: No
  Sender: FDA-Public Use
  Company Number: US-BAYER-2022A040875

PATIENT
  Age: 79 Year

DRUGS (1)
  1. MIRALAX [Suspect]
     Active Substance: POLYETHYLENE GLYCOL 3350
     Dosage: A FEW TIMES A WEEK
     Route: 048
     Dates: start: 2022

REACTIONS (1)
  - Tooth discolouration [Recovered/Resolved]

NARRATIVE: CASE EVENT DATE: 20220101
